FAERS Safety Report 7738951-2 (Version None)
Quarter: 2011Q3

REPORT INFORMATION
  Report Type: 
  Country: None (occurrence: None)
  Receive Date: 20110909
  Receipt Date: 20110830
  Transmission Date: 20111222
  Serious: No
  Sender: FDA-Public Use
  Company Number: US-BIOGENIDEC-2011BI027573

PATIENT
  Age: 53 Year
  Sex: Female

DRUGS (2)
  1. BENADRYL [Concomitant]
     Indication: PREMEDICATION
  2. TYSABRI [Suspect]
     Indication: MULTIPLE SCLEROSIS
     Route: 042
     Dates: start: 20110713

REACTIONS (7)
  - ABDOMINAL PAIN [None]
  - PAIN IN EXTREMITY [None]
  - DIZZINESS [None]
  - HEADACHE [None]
  - INSOMNIA [None]
  - ASTHENIA [None]
  - FATIGUE [None]
